FAERS Safety Report 11570356 (Version 1)
Quarter: 2015Q3

REPORT INFORMATION
  Report Type: Spontaneous
  Country: IT (occurrence: IT)
  Receive Date: 20150929
  Receipt Date: 20150929
  Transmission Date: 20151125
  Serious: Yes (Hospitalization)
  Sender: FDA-Public Use
  Company Number: IT-009507513-1509ITA013835

PATIENT
  Age: 51 Year
  Sex: Male
  Weight: 85 kg

DRUGS (6)
  1. PREZISTA [Concomitant]
     Active Substance: DARUNAVIR ETHANOLATE
     Indication: HUMAN IMMUNODEFICIENCY VIRUS TRANSMISSION
     Dosage: 1  DOSE UNIT, DAILY
     Route: 048
     Dates: start: 20080812
  2. EXVIERA [Suspect]
     Active Substance: DASABUVIR
     Indication: HEPATITIS C
     Dosage: 2 DOSE UNIT, DAILY
     Route: 048
     Dates: start: 20150708, end: 20150918
  3. ISENTRESS [Concomitant]
     Active Substance: RALTEGRAVIR POTASSIUM
     Indication: HUMAN IMMUNODEFICIENCY VIRUS TRANSMISSION
     Dosage: UNK
     Route: 048
  4. CELSENTRI [Concomitant]
     Active Substance: MARAVIROC
     Indication: HUMAN IMMUNODEFICIENCY VIRUS TRANSMISSION
     Dosage: 1 DOSE UNIT, DAILY
     Route: 048
     Dates: start: 20150507
  5. REBETOL [Suspect]
     Active Substance: RIBAVIRIN
     Indication: HEPATITIS C
     Dosage: 2 DOSE UNITS DAILY
     Route: 048
     Dates: start: 20150918, end: 20150918
  6. VIEKIRAX [Suspect]
     Active Substance: OMBITASVIR\PARITAPREVIR\RITONAVIR
     Indication: HEPATITIS C
     Dosage: 12.5 MG+75 MG+50 MG, 2 DOSE UNITS, DAILY
     Route: 048
     Dates: start: 20150708, end: 20150918

REACTIONS (1)
  - Angina unstable [Recovered/Resolved]

NARRATIVE: CASE EVENT DATE: 20150828
